FAERS Safety Report 11774339 (Version 1)
Quarter: 2015Q4

REPORT INFORMATION
  Report Type: Spontaneous
  Country: US (occurrence: US)
  Receive Date: 20151124
  Receipt Date: 20151124
  Transmission Date: 20160304
  Serious: No
  Sender: FDA-Public Use
  Company Number: US-BAYER-2015-470171

PATIENT
  Age: 35 Year
  Sex: Female
  Weight: 63.49 kg

DRUGS (3)
  1. ALEVE [Suspect]
     Active Substance: NAPROXEN SODIUM
     Dosage: 4 DF, UNK
     Route: 048
  2. IBUPROFEN. [Concomitant]
     Active Substance: IBUPROFEN
     Dosage: UNK
  3. ALEVE [Suspect]
     Active Substance: NAPROXEN SODIUM
     Dosage: TOOK 2 ALEVE AT 01:30 TOOK 4 MORE
     Dates: start: 20151113

REACTIONS (2)
  - Incorrect dose administered [None]
  - Extra dose administered [Unknown]

NARRATIVE: CASE EVENT DATE: 20151113
